FAERS Safety Report 8286727-2 (Version None)
Quarter: 2012Q2

REPORT INFORMATION
  Report Type: 
  Country: None (occurrence: None)
  Receive Date: 20120416
  Receipt Date: 20120406
  Transmission Date: 20120825
  Serious: Yes (Other)
  Sender: FDA-Public Use
  Company Number: US-BAYER-2012-034205

PATIENT
  Age: 29 Year
  Sex: Male
  Weight: 95 kg

DRUGS (1)
  1. ALEVE (CAPLET) [Suspect]
     Indication: BACK PAIN
     Dosage: 3 DF, UNK
     Route: 048
     Dates: end: 20120406

REACTIONS (6)
  - PRURITUS [None]
  - LACRIMATION INCREASED [None]
  - ERYTHEMA [None]
  - SWELLING FACE [None]
  - CHEST PAIN [None]
  - MIGRAINE [None]
